FAERS Safety Report 11746833 (Version 3)
Quarter: 2016Q1

REPORT INFORMATION
  Report Type: Report from Study
  Country: PR (occurrence: PR)
  Receive Date: 20151117
  Receipt Date: 20160215
  Transmission Date: 20160525
  Serious: Yes (Hospitalization)
  Sender: FDA-Public Use
  Company Number: PR-PFIZER INC-2015380181

PATIENT
  Age: 66 Year
  Sex: Female
  Weight: 93.42 kg

DRUGS (13)
  1. ASPIRIN. [Concomitant]
     Active Substance: ASPIRIN
     Indication: OSTEOPOROSIS
     Dosage: UNK
     Dates: start: 2000
  2. ATORVASTATIN [Concomitant]
     Active Substance: ATORVASTATIN
     Indication: ANGINA UNSTABLE
     Dosage: UNK
     Dates: start: 20150916
  3. SYNTHROID [Concomitant]
     Active Substance: LEVOTHYROXINE SODIUM
     Indication: HYPOTHYROIDISM
     Dosage: UNK
     Dates: start: 2000
  4. ONGLYZA [Concomitant]
     Active Substance: SAXAGLIPTIN HYDROCHLORIDE
     Indication: DIABETES MELLITUS
     Dosage: UNK
     Dates: start: 2012
  5. METHOTREXATE [Concomitant]
     Active Substance: METHOTREXATE
     Indication: RHEUMATOID ARTHRITIS
     Dosage: UNK
     Dates: start: 20150120
  6. ALENDRONATE [Concomitant]
     Active Substance: ALENDRONATE SODIUM
     Indication: OSTEOPOROSIS
     Dosage: UNK
     Dates: start: 2000
  7. METHYLPREDNISOLONE. [Concomitant]
     Active Substance: METHYLPREDNISOLONE
     Indication: RHEUMATOID ARTHRITIS
     Dosage: UNK
     Dates: start: 20150120
  8. GABAPENTIN. [Concomitant]
     Active Substance: GABAPENTIN
     Indication: DIABETIC NEUROPATHY
     Dosage: UNK
     Dates: start: 2015
  9. ISOSORBIDE. [Concomitant]
     Active Substance: ISOSORBIDE
     Indication: ACUTE CORONARY SYNDROME
     Dosage: UNK
     Dates: start: 2000
  10. FUROSEMIDE. [Concomitant]
     Active Substance: FUROSEMIDE
     Indication: HYPERTENSION
     Dosage: UNK
     Dates: start: 2000
  11. TOFACITINIB CITRATE [Suspect]
     Active Substance: TOFACITINIB CITRATE
     Indication: RHEUMATOID ARTHRITIS
     Dosage: 10 MG, 2X/DAY
     Route: 048
     Dates: start: 20150715, end: 20151012
  12. ENALAPRIL [Concomitant]
     Active Substance: ENALAPRIL
     Indication: HYPERTENSION
     Dosage: UNK
     Dates: start: 2000
  13. CARVEDILOL. [Concomitant]
     Active Substance: CARVEDILOL
     Indication: HYPERTENSION
     Dosage: UNK
     Dates: start: 2000

REACTIONS (1)
  - Cardiac failure congestive [Recovering/Resolving]

NARRATIVE: CASE EVENT DATE: 20151013
